FAERS Safety Report 12202773 (Version 1)
Quarter: 2016Q1

REPORT INFORMATION
  Report Type: Spontaneous
  Country: None (occurrence: US)
  Receive Date: 20160322
  Receipt Date: 20160322
  Transmission Date: 20160526
  Serious: No
  Sender: FDA-Public Use
  Company Number: US-MATRIXX INITIATIVES, INC.-1049451

PATIENT
  Age: 30 Year
  Sex: Female
  Weight: 104.55 kg

DRUGS (6)
  1. VITAMIN D [Concomitant]
     Active Substance: CHOLECALCIFEROL
  2. VITAMIN B12 [Concomitant]
     Active Substance: CYANOCOBALAMIN
  3. ZICAM INTENSE SINUS RELIEF [Suspect]
     Active Substance: OXYMETAZOLINE HYDROCHLORIDE
     Indication: NASAL CONGESTION
     Route: 045
     Dates: start: 20160312, end: 20160315
  4. COQ10 [Concomitant]
     Active Substance: UBIDECARENONE
  5. PRENATAL VITAMINS [Concomitant]
     Active Substance: VITAMINS
  6. TUMERIC [Concomitant]
     Active Substance: TURMERIC

REACTIONS (2)
  - Anosmia [Not Recovered/Not Resolved]
  - Dysgeusia [None]
